FAERS Safety Report 23230798 (Version 2)
Quarter: 2023Q4

REPORT INFORMATION
  Report Type: Spontaneous
  Country: US (occurrence: US)
  Receive Date: 20231127
  Receipt Date: 20231204
  Transmission Date: 20240110
  Serious: No
  Sender: FDA-Public Use
  Company Number: US-SA-SAC20231122000272

PATIENT
  Sex: Male

DRUGS (13)
  1. DUPIXENT [Suspect]
     Active Substance: DUPILUMAB
     Indication: Dermatitis atopic
     Dosage: 300 MG, QOW
     Route: 058
  2. ACYCLOVIR [Concomitant]
     Active Substance: ACYCLOVIR
  3. LORATADINE [Concomitant]
     Active Substance: LORATADINE
  4. ALLOPURINOL [Concomitant]
     Active Substance: ALLOPURINOL
  5. CLARITIN [Concomitant]
     Active Substance: LORATADINE
  6. CLOBETASOL PROPIONATE [Concomitant]
     Active Substance: CLOBETASOL PROPIONATE
  7. FISH OIL [Concomitant]
     Active Substance: FISH OIL
  8. GEMFIBROZIL [Concomitant]
     Active Substance: GEMFIBROZIL
  9. MUPIROCIN [Concomitant]
     Active Substance: MUPIROCIN
  10. NAPROXEN [Concomitant]
     Active Substance: NAPROXEN
  11. PRAVASTATIN [Concomitant]
     Active Substance: PRAVASTATIN
  12. TRAZODONE HCL [Concomitant]
     Active Substance: TRAZODONE HYDROCHLORIDE
  13. TRIAMCINOLONE [Concomitant]
     Active Substance: TRIAMCINOLONE

REACTIONS (2)
  - Injection site swelling [Recovered/Resolved]
  - Injection site bruising [Recovered/Resolved]
